FAERS Safety Report 20103201 (Version 1)
Quarter: 2021Q4

REPORT INFORMATION
  Report Type: Spontaneous
  Country: US (occurrence: US)
  Receive Date: 20211123
  Receipt Date: 20211123
  Transmission Date: 20220303
  Serious: Yes (Death)
  Sender: FDA-Public Use
  Company Number: US-PARATEK PHARMACEUTICALS, INC.-2021PTK00230

PATIENT
  Age: 39 Year
  Sex: Female

DRUGS (3)
  1. OMADACYCLINE [Suspect]
     Active Substance: OMADACYCLINE
     Indication: Mycobacterium abscessus infection
     Route: 042
  2. CEFOXITIN [Concomitant]
     Active Substance: CEFOXITIN SODIUM
  3. CLOFAZIMINE [Concomitant]
     Active Substance: CLOFAZIMINE

REACTIONS (2)
  - Death [Fatal]
  - Unevaluable event [Unknown]
